FAERS Safety Report 6982018-8 (Version None)
Quarter: 2010Q3

REPORT INFORMATION
  Report Type: 
  Country: None (occurrence: None)
  Receive Date: 20100914
  Receipt Date: 20091116
  Transmission Date: 20110219
  Serious: No
  Sender: FDA-Public Use
  Company Number: US-PFIZER INC-2009278258

PATIENT
  Sex: Female

DRUGS (7)
  1. LYRICA [Suspect]
     Indication: NEUROPATHY PERIPHERAL
     Dosage: 75 MG, 4X/DAY
     Dates: start: 20090901
  2. LEVOTHYROXINE SODIUM [Concomitant]
     Indication: THYROID DISORDER
     Dosage: UNK
  3. CELEBREX [Concomitant]
     Dosage: 200 MG, 2X/DAY
  4. NORCO [Concomitant]
     Dosage: UNK
  5. PROZAC [Concomitant]
     Dosage: UNK
  6. CARISOPRODOL [Concomitant]
     Indication: MUSCLE RELAXANT THERAPY
     Dosage: UNK
  7. SPIRONOLACTONE [Concomitant]
     Dosage: UNK

REACTIONS (1)
  - DRUG INEFFECTIVE [None]
